FAERS Safety Report 20301930 (Version 1)
Quarter: 2022Q1

REPORT INFORMATION
  Report Type: Report from Study
  Country: BR (occurrence: BR)
  Receive Date: 20220105
  Receipt Date: 20220105
  Transmission Date: 20220423
  Serious: Yes (Death, Other)
  Sender: FDA-Public Use
  Company Number: BR-ABBVIE-22K-020-4219839-00

PATIENT
  Age: 53 Year
  Sex: Male
  Weight: 78 kg

DRUGS (1)
  1. SKYRIZI [Suspect]
     Active Substance: RISANKIZUMAB-RZAA
     Indication: Psoriasis
     Dosage: 75MG/0, 83ML
     Route: 058
     Dates: start: 20201207

REACTIONS (2)
  - Cirrhosis alcoholic [Fatal]
  - Alcohol poisoning [Fatal]

NARRATIVE: CASE EVENT DATE: 20211226
